FAERS Safety Report 19048007 (Version 1)
Quarter: 2021Q1

REPORT INFORMATION
  Report Type: Report from Study
  Country: None (occurrence: US)
  Receive Date: 20210324
  Receipt Date: 20210324
  Transmission Date: 20210420
  Serious: Yes (Hospitalization, Other)
  Sender: FDA-Public Use
  Company Number: US-ABBVIE-21K-163-3823597-00

PATIENT
  Age: 82 Year
  Sex: Male

DRUGS (1)
  1. VENCLEXTA [Suspect]
     Active Substance: VENETOCLAX
     Indication: CHRONIC LYMPHOCYTIC LEUKAEMIA
     Route: 048
     Dates: start: 202103, end: 202103

REACTIONS (6)
  - Platelet count decreased [Unknown]
  - Pollakiuria [Unknown]
  - Feeling hot [Unknown]
  - Myocardial infarction [Unknown]
  - Tremor [Unknown]
  - Body temperature increased [Unknown]

NARRATIVE: CASE EVENT DATE: 202103
